FAERS Safety Report 6641535-0 (Version None)
Quarter: 2010Q1

REPORT INFORMATION
  Report Type: 
  Country: None (occurrence: None)
  Receive Date: 20100317
  Receipt Date: 20100317
  Transmission Date: 20100710
  Serious: Yes (Hospitalization)
  Sender: FDA-Public Use
  Company Number: None

PATIENT
  Age: 31 Year
  Sex: Male
  Weight: 108.4 kg

DRUGS (4)
  1. WARFARIN SODIUM [Suspect]
     Indication: THROMBOSIS PROPHYLAXIS
     Dosage: 15MG DAILY PO, NO USE X 1 WEEK
     Route: 048
  2. DALTEPARIN [Concomitant]
  3. DOCUSATE [Concomitant]
  4. OXYCODONE HCL AND ACETAMINOPHEN [Concomitant]

REACTIONS (1)
  - DEEP VEIN THROMBOSIS [None]
